FAERS Safety Report 6329925-7 (Version None)
Quarter: 2009Q3

REPORT INFORMATION
  Report Type: 
  Country: None (occurrence: None)
  Receive Date: 20090825
  Receipt Date: 20090811
  Transmission Date: 20100115
  Serious: Yes (Other)
  Sender: FDA-Public Use
  Company Number: 2009EN000187

PATIENT
  Age: 14 Year
  Sex: Female
  Weight: 50 kg

DRUGS (5)
  1. ABELCET [Suspect]
     Indication: PULMONARY MYCOSIS
     Dosage: 5 MG/KG; QD; IV
     Route: 042
     Dates: start: 20090505, end: 20090505
  2. MEROPENEM [Concomitant]
  3. ZYVOXID [Concomitant]
  4. POLPRAZOL [Concomitant]
  5. . [Concomitant]

REACTIONS (3)
  - CHILLS [None]
  - PYREXIA [None]
  - TREMOR [None]
